FAERS Safety Report 13542559 (Version 1)
Quarter: 2017Q2

REPORT INFORMATION
  Report Type: Spontaneous
  Country: US (occurrence: US)
  Receive Date: 20170512
  Receipt Date: 20170512
  Transmission Date: 20170830
  Serious: Yes (Other)
  Sender: FDA-Public Use
  Company Number: US-ROCHE-751303

PATIENT
  Age: 33 Year
  Sex: Female

DRUGS (2)
  1. BEVACIZUMAB [Suspect]
     Active Substance: BEVACIZUMAB
     Indication: VAGINAL ADENOCARCINOMA
     Route: 065
  2. CYTOXAN [Suspect]
     Active Substance: CYCLOPHOSPHAMIDE
     Indication: VAGINAL ADENOCARCINOMA
     Dosage: DURG REPORTED AS METRONOMIC CYTOXAN
     Route: 065

REACTIONS (1)
  - Proteinuria [Unknown]
